FAERS Safety Report 4724976-8 (Version None)
Quarter: 2005Q3

REPORT INFORMATION
  Report Type: 
  Country: None (occurrence: None)
  Receive Date: 20050722
  Receipt Date: 20050722
  Transmission Date: 20060218
  Serious: Yes (Hospitalization)
  Sender: FDA-Public Use
  Company Number: None

PATIENT
  Age: 30 Year
  Sex: Female

DRUGS (1)
  1. LAMOTRIGINE [Suspect]

REACTIONS (7)
  - ATONIC SEIZURES [None]
  - DRUG LEVEL INCREASED [None]
  - FALL [None]
  - GAIT DISTURBANCE [None]
  - GRAND MAL CONVULSION [None]
  - LETHARGY [None]
  - MYOCLONIC EPILEPSY [None]
